FAERS Safety Report 9914253 (Version 1)
Quarter: 2014Q1

REPORT INFORMATION
  Report Type: Spontaneous
  Country: US (occurrence: None)
  Receive Date: 20140219
  Receipt Date: 20140219
  Transmission Date: 20141002
  Serious: No
  Sender: FDA-Public Use
  Company Number: None

PATIENT
  Age: 78 Year
  Sex: Female
  Weight: 58.97 kg

DRUGS (1)
  1. BUTRANS [Suspect]
     Indication: BACK PAIN
     Dosage: EVERY 5 DAYS  APPLIED AS MEDICATED PATCH TO SKIN
     Dates: start: 20140130, end: 20140217

REACTIONS (1)
  - Chemical injury [None]
